FAERS Safety Report 7568326-0 (Version None)
Quarter: 2011Q2

REPORT INFORMATION
  Report Type: 
  Country: None (occurrence: None)
  Receive Date: 20110623
  Receipt Date: 20110603
  Transmission Date: 20111010
  Serious: Yes (Hospitalization)
  Sender: FDA-Public Use
  Company Number: A0839313A

PATIENT
  Age: 64 Year
  Sex: Male
  Weight: 90 kg

DRUGS (6)
  1. STARLIX [Concomitant]
  2. GLUCOPHAGE [Concomitant]
  3. LIPITOR [Concomitant]
  4. AVANDIA [Suspect]
     Dosage: 4MG TWICE PER DAY
     Route: 048
     Dates: start: 20020530, end: 20040914
  5. GLUCOTROL XL [Concomitant]
  6. MONOPRIL [Concomitant]

REACTIONS (3)
  - CARDIAC FAILURE CONGESTIVE [None]
  - BLINDNESS [None]
  - CORONARY ARTERY DISEASE [None]
